FAERS Safety Report 9708739 (Version 1)
Quarter: 2013Q4

REPORT INFORMATION
  Report Type: Spontaneous
  Country: US (occurrence: US)
  Receive Date: 20131125
  Receipt Date: 20131125
  Transmission Date: 20140711
  Serious: Yes (Death)
  Sender: FDA-Public Use
  Company Number: US-GLAXOSMITHKLINE-A1051124A

PATIENT
  Age: 84 Year
  Sex: Male

DRUGS (7)
  1. VOTRIENT [Suspect]
     Indication: MALIGNANT URINARY TRACT NEOPLASM
     Dosage: 800MG PER DAY
     Route: 048
     Dates: start: 20131015, end: 20131104
  2. CARVEDILOL [Concomitant]
  3. SYNTHROID [Concomitant]
  4. CRESTOR [Concomitant]
  5. LASIX [Concomitant]
  6. IRON [Concomitant]
  7. WARFARIN [Concomitant]

REACTIONS (1)
  - Death [Fatal]
